FAERS Safety Report 9468288 (Version 5)
Quarter: 2013Q4

REPORT INFORMATION
  Report Type: Spontaneous
  Country: US (occurrence: US)
  Receive Date: 20130821
  Receipt Date: 20131023
  Transmission Date: 20140711
  Serious: Yes (Hospitalization)
  Sender: FDA-Public Use
  Company Number: US-ALLERGAN-1306648US

PATIENT
  Age: 43 Year
  Sex: Male
  Weight: 90.7 kg

DRUGS (10)
  1. BOTOX [Suspect]
     Indication: TORTICOLLIS
     Dosage: 100 UNITS, SINGLE
     Route: 030
     Dates: start: 20130425, end: 20130425
  2. BOTOX [Suspect]
     Indication: MUSCULOSKELETAL PAIN
     Dosage: UNK
     Dates: start: 20130425, end: 20130425
  3. DEPAKOTE [Concomitant]
     Indication: PRODUCT USED FOR UNKNOWN INDICATION
     Dosage: 500 MG, QAM
     Route: 048
  4. DEPAKOTE [Concomitant]
     Dosage: 1000 MG, QPM
     Route: 048
  5. METHADONE [Concomitant]
     Indication: DRUG DEPENDENCE
     Dosage: 70 MG, QD
     Route: 048
  6. CLOZAPINE [Concomitant]
     Indication: ANXIETY
     Dosage: 1 MG, BID
     Route: 048
  7. PAXIL                              /00830802/ [Concomitant]
     Indication: PRODUCT USED FOR UNKNOWN INDICATION
     Dosage: 20 MG, QD
     Route: 048
  8. ZOLPIDEM [Concomitant]
     Indication: PRODUCT USED FOR UNKNOWN INDICATION
     Dosage: 10 MG, QD
     Route: 048
  9. TRIHEXYPHENIDYL [Concomitant]
     Indication: CARPAL TUNNEL SYNDROME
     Dosage: 2 MG, BID-TID
     Route: 048
     Dates: start: 201304
  10. ENALAPRIL [Concomitant]
     Indication: HYPERTENSION
     Dosage: UNK UNK, QD
     Route: 048

REACTIONS (8)
  - Suicidal ideation [Not Recovered/Not Resolved]
  - Depression [Not Recovered/Not Resolved]
  - Asthenia [Unknown]
  - Dry mouth [Unknown]
  - Drug ineffective [Unknown]
  - Neck pain [Recovered/Resolved]
  - Muscular weakness [Recovered/Resolved]
  - Off label use [Unknown]
